FAERS Safety Report 7194248-3 (Version None)
Quarter: 2010Q4

REPORT INFORMATION
  Report Type: 
  Country: None (occurrence: None)
  Receive Date: 20101223
  Receipt Date: 20101213
  Transmission Date: 20110411
  Serious: Yes (Hospitalization)
  Sender: FDA-Public Use
  Company Number: AU-ELI_LILLY_AND_COMPANY-AU201011004284

PATIENT
  Age: 51 Year
  Sex: Female

DRUGS (13)
  1. CYMBALTA [Suspect]
     Indication: DEPRESSION
     Dosage: 60 MG, UNK
     Dates: start: 20101105, end: 20101107
  2. ASPIRIN [Concomitant]
     Dosage: 100 MG, DAILY (1/D)
     Route: 048
  3. CARDIZEM CD [Concomitant]
     Dosage: 240 MG, DAILY (1/D)
     Route: 048
  4. DIABEX S.R. [Concomitant]
     Dosage: 500 MG, 4/D
     Route: 048
  5. JANUVIA [Concomitant]
     Dosage: 100 MG, DAILY (1/D)
     Route: 048
  6. MAXOLON [Concomitant]
     Dosage: Q8 HOURS, AS NEEDED
     Route: 048
  7. METOPROLOL TARTRATE [Concomitant]
     Dosage: 100 MG, 2/D
     Route: 048
  8. MINOMYCIN [Concomitant]
     Dosage: 50 MG, 2/D
     Route: 048
  9. PRAVACHOL [Concomitant]
     Dosage: 40 MG, DAILY (1/D)
     Route: 048
  10. RENITEC PLUS [Concomitant]
     Dosage: 20MG/6 MG
     Route: 048
  11. SOMAC [Concomitant]
     Dosage: 40 MG, DAILY (1/D)
     Route: 048
  12. SPIRIVA [Concomitant]
     Dosage: 18 UG, DAILY (1/D)
     Route: 055
  13. VALIUM [Concomitant]
     Dosage: 5 MG, DAILY (1/D)
     Route: 048

REACTIONS (7)
  - ABDOMINAL PAIN UPPER [None]
  - DIARRHOEA [None]
  - GASTROINTESTINAL INFECTION [None]
  - HEART RATE INCREASED [None]
  - HYPOPHAGIA [None]
  - MOBILITY DECREASED [None]
  - MUSCULAR WEAKNESS [None]
